FAERS Safety Report 4531228-8 (Version None)
Quarter: 2004Q4

REPORT INFORMATION
  Report Type: 
  Country: None (occurrence: None)
  Receive Date: 20041216
  Receipt Date: 20041207
  Transmission Date: 20050328
  Serious: Yes (Other)
  Sender: FDA-Public Use
  Company Number: STA-AE-04-MTX-620

PATIENT
  Age: 80 Year
  Sex: Female

DRUGS (2)
  1. METHOTREXATE [Suspect]
     Indication: RHEUMATOID ARTHRITIS
     Dosage: 5 MG 1X PER 1 WK, ORAL
     Route: 048
     Dates: start: 19940501
  2. PREDNISOLONE [Suspect]
     Dosage: 5 MG 1XPER 1 DAY, ORAL
     Route: 048
     Dates: start: 19940501

REACTIONS (3)
  - CRYPTOCOCCOSIS [None]
  - LUNG NEOPLASM MALIGNANT [None]
  - METASTASES TO SPINE [None]
